FAERS Safety Report 8381428-4 (Version None)
Quarter: 2012Q2

REPORT INFORMATION
  Report Type: 
  Country: None (occurrence: None)
  Receive Date: 20120523
  Receipt Date: 20120510
  Transmission Date: 20120825
  Serious: Yes (Hospitalization)
  Sender: FDA-Public Use
  Company Number: US-CELGENEUS-163-21660-12051410

PATIENT
  Sex: Female
  Weight: 112 kg

DRUGS (21)
  1. CARBOPLATIN [Suspect]
     Indication: BREAST CANCER
     Dosage: 900 MILLIGRAM
     Route: 041
     Dates: start: 20120302
  2. PROCHLORPERAZINE [Concomitant]
     Indication: VOMITING
     Dosage: 10 MILLIGRAM
     Route: 048
  3. HERCEPTIN [Suspect]
     Dosage: 224 MILLIGRAM
     Route: 041
     Dates: start: 20120420, end: 20120427
  4. ONDANSETRON HCL [Concomitant]
     Indication: NAUSEA
     Dosage: 8 MILLIGRAM
     Route: 048
  5. ONDANSETRON HCL [Concomitant]
     Indication: VOMITING
  6. PROCHLORPERAZINE [Concomitant]
     Indication: NAUSEA
     Dosage: 1.5 MILLIGRAM
     Route: 048
  7. GENTAMICIN [Concomitant]
     Route: 041
     Dates: start: 20120502, end: 20120503
  8. MIRALAX [Concomitant]
     Indication: CONSTIPATION
     Dosage: 17 GRAM
     Route: 048
  9. ABRAXANE [Suspect]
     Dosage: 213 MILLIGRAM
     Route: 041
     Dates: start: 20120420, end: 20120427
  10. HERCEPTIN [Suspect]
     Indication: BREAST CANCER
     Dosage: 224 MILLIGRAM
     Route: 041
     Dates: start: 20120302
  11. DEXAMETHASONE [Concomitant]
     Dosage: 1 MICROGRAM
     Route: 048
  12. AMBIEN [Concomitant]
     Indication: CONSTIPATION
     Dosage: 5 MILLIGRAM
     Route: 048
  13. CARBOPLATIN [Suspect]
     Dosage: 900 MILLIGRAM
     Route: 041
     Dates: start: 20120420, end: 20120427
  14. POTASSIUM CHLORIDE [Concomitant]
     Route: 048
  15. COUMADIN [Concomitant]
     Dosage: 7.5 MILLIGRAM
     Route: 048
  16. COZAAR [Concomitant]
     Indication: HYPERTENSION
     Dosage: 50 MILLIGRAM
     Route: 048
  17. POTASSIUM CHLORIDE [Concomitant]
     Route: 041
  18. ZOSYN [Concomitant]
     Route: 065
     Dates: start: 20120502, end: 20120503
  19. VANCOMYCIN [Concomitant]
     Route: 065
     Dates: start: 20120502, end: 20120503
  20. ABRAXANE [Suspect]
     Indication: BREAST CANCER
     Dosage: 213 MILLIGRAM
     Route: 041
     Dates: start: 20120302
  21. COUMADIN [Concomitant]
     Indication: DEVICE OCCLUSION
     Dosage: 5 MILLIGRAM
     Route: 048
     Dates: start: 20120207

REACTIONS (11)
  - HYPOALBUMINAEMIA [None]
  - HAEMOGLOBIN DECREASED [None]
  - NEUTROPENIA [None]
  - PAIN IN EXTREMITY [None]
  - WHITE BLOOD CELL COUNT DECREASED [None]
  - HYPERTENSION [None]
  - CONSTIPATION [None]
  - CELLULITIS [None]
  - HYPOKALAEMIA [None]
  - INTERNATIONAL NORMALISED RATIO [None]
  - URINARY TRACT INFECTION [None]
